FAERS Safety Report 5255806-6 (Version None)
Quarter: 2007Q1

REPORT INFORMATION
  Report Type: 
  Country: None (occurrence: None)
  Receive Date: 20070301
  Receipt Date: 20070214
  Transmission Date: 20070707
  Serious: Yes (Other)
  Sender: FDA-Public Use
  Company Number: 8022220

PATIENT
  Sex: Female

DRUGS (2)
  1. PREDNISOLONE [Suspect]
     Indication: ROSACEA
  2. ERYTHROMYCIN [Suspect]
     Indication: ROSACEA

REACTIONS (8)
  - BODY MASS INDEX INCREASED [None]
  - CAESAREAN SECTION [None]
  - DRUG EXPOSURE DURING PREGNANCY [None]
  - ERYTHEMA [None]
  - GESTATIONAL DIABETES [None]
  - OBSTETRIC PROCEDURE COMPLICATION [None]
  - OLIGOHYDRAMNIOS [None]
  - STILLBIRTH [None]
